FAERS Safety Report 6923611-8 (Version None)
Quarter: 2010Q3

REPORT INFORMATION
  Report Type: 
  Country: None (occurrence: None)
  Receive Date: 20100813
  Receipt Date: 20100805
  Transmission Date: 20110219
  Serious: Yes (Hospitalization)
  Sender: FDA-Public Use
  Company Number: A0875593A

PATIENT
  Age: 63 Year
  Sex: Female

DRUGS (1)
  1. AVANDIA [Suspect]
     Route: 048
     Dates: start: 20050901, end: 20080101

REACTIONS (3)
  - CORONARY ARTERY DISEASE [None]
  - HAEMORRHAGE [None]
  - MYOCARDIAL INFARCTION [None]
